FAERS Safety Report 21684066 (Version 1)
Quarter: 2022Q4

REPORT INFORMATION
  Report Type: Spontaneous
  Country: US (occurrence: None)
  Receive Date: 20221202
  Receipt Date: 20221202
  Transmission Date: 20230112
  Serious: Yes (unspecified)
  Sender: FDA-Public Use
  Company Number: None

PATIENT
  Age: 36 Year
  Sex: Male
  Weight: 177.3 kg

DRUGS (1)
  1. TENECTEPLASE [Suspect]
     Active Substance: TENECTEPLASE

REACTIONS (5)
  - Agitation [None]
  - Incorrect drug administration rate [None]
  - Snoring [None]
  - Unresponsive to stimuli [None]
  - Accidental overdose [None]

NARRATIVE: CASE EVENT DATE: 20221114
